FAERS Safety Report 6065218-3 (Version None)
Quarter: 2009Q1

REPORT INFORMATION
  Report Type: 
  Country: None (occurrence: None)
  Receive Date: 20090204
  Receipt Date: 20090122
  Transmission Date: 20090719
  Serious: Yes (Hospitalization, Other)
  Sender: FDA-Public Use
  Company Number: PHHY2008BR27544

PATIENT
  Sex: Female

DRUGS (11)
  1. TRILEPTAL [Suspect]
     Indication: EPILEPSY
     Dosage: 300 MG, TID
     Route: 048
     Dates: start: 20000101
  2. TRILEPTAL [Suspect]
     Indication: CONVULSION
     Dosage: 600 MG, TID
     Route: 048
     Dates: start: 20040101
  3. ASPIRIN [Concomitant]
     Indication: CIRCULATING ANTICOAGULANT
     Dosage: UNK
     Route: 048
  4. PROTOS (STRONTIUM RANELATE) [Concomitant]
     Indication: OSTEOPOROSIS
     Dosage: 2 G, ONE SACHET TWO HOURS AFTER DINNER
  5. OLMETEC [Concomitant]
     Indication: HYPERTENSION
     Dosage: HALF TABLET PER DAY
  6. OLMETEC [Concomitant]
     Dosage: 1 TABLET A DAY
     Dates: start: 20080702
  7. DEPAKENE [Concomitant]
     Dosage: UNK
  8. TOPIRAMATE [Concomitant]
     Dosage: UNK
  9. RIVOTRIL [Concomitant]
     Dosage: UNK
  10. CALCIUM [Concomitant]
  11. CALDEA [Concomitant]
     Indication: OSTEOPOROSIS

REACTIONS (25)
  - ABASIA [None]
  - ABNORMAL BEHAVIOUR [None]
  - ANAEMIA [None]
  - APATHY [None]
  - ASTHENIA [None]
  - BLOOD POTASSIUM DECREASED [None]
  - DECREASED APPETITE [None]
  - DIARRHOEA [None]
  - DYSPHONIA [None]
  - FALL [None]
  - HYPERTENSION [None]
  - HYPONATRAEMIA [None]
  - MEMORY IMPAIRMENT [None]
  - MOVEMENT DISORDER [None]
  - NAUSEA [None]
  - ORTHOSTATIC HYPOTENSION [None]
  - PETIT MAL EPILEPSY [None]
  - QUALITY OF LIFE DECREASED [None]
  - REFLUX OESOPHAGITIS [None]
  - SOMNOLENCE [None]
  - SYNCOPE [None]
  - TREMOR [None]
  - URINARY RETENTION [None]
  - VISION BLURRED [None]
  - VOMITING [None]
